FAERS Safety Report 7618170-0 (Version None)
Quarter: 2011Q3

REPORT INFORMATION
  Report Type: 
  Country: None (occurrence: None)
  Receive Date: 20110718
  Receipt Date: 20110624
  Transmission Date: 20111222
  Serious: Yes (Hospitalization)
  Sender: FDA-Public Use
  Company Number: US-GLAXOSMITHKLINE-A0869803A

PATIENT
  Age: 46 Year
  Sex: Male

DRUGS (6)
  1. LESCOL XL [Concomitant]
  2. ATIVAN [Concomitant]
  3. AVANDIA [Suspect]
     Indication: DIABETES MELLITUS
     Dosage: 8MG PER DAY
     Route: 048
     Dates: start: 20050118, end: 20060801
  4. GLIPIZIDE [Concomitant]
  5. ATENOLOL [Concomitant]
  6. NEURONTIN [Concomitant]

REACTIONS (3)
  - MYOCARDIAL INFARCTION [None]
  - CORONARY ARTERY DISEASE [None]
  - RENAL FAILURE [None]
